FAERS Safety Report 7254242-0 (Version None)
Quarter: 2011Q1

REPORT INFORMATION
  Report Type: 
  Country: None (occurrence: None)
  Receive Date: 20110129
  Receipt Date: 20100120
  Transmission Date: 20110831
  Serious: No
  Sender: FDA-Public Use
  Company Number: US-ABBOTT-09P-163-0602391-00

PATIENT
  Sex: Male
  Weight: 88.076 kg

DRUGS (12)
  1. CELEBREX [Concomitant]
     Indication: CROHN'S DISEASE
  2. REMICADE [Suspect]
     Indication: CROHN'S DISEASE
     Dosage: LYOPHILISED POWDER
     Route: 042
  3. PENTASA [Concomitant]
     Indication: CROHN'S DISEASE
  4. ELAVIL [Concomitant]
     Indication: CROHN'S DISEASE
     Dosage: 100MG, IN 1 HOUR OF SLEEP
  5. PRILOSEC [Concomitant]
     Indication: DYSPEPSIA
  6. MULTIPLE VITAMINS [Concomitant]
     Indication: VITAMIN SUPPLEMENTATION
  7. HUMIRA [Suspect]
     Indication: CROHN'S DISEASE
     Dates: start: 20060414, end: 20090505
  8. CREON [Concomitant]
     Indication: CROHN'S DISEASE
  9. IRON [Concomitant]
     Indication: ANAEMIA
  10. CALCIUM [Concomitant]
     Indication: MINERAL SUPPLEMENTATION
  11. FOLIC ACID [Concomitant]
     Indication: CROHN'S DISEASE
  12. NORVASC [Concomitant]
     Indication: HYPERTENSION

REACTIONS (9)
  - DYSPHONIA [None]
  - EYE DISORDER [None]
  - BRONCHIECTASIS [None]
  - HYPOXIA [None]
  - DYSPNOEA EXERTIONAL [None]
  - DYSPHAGIA [None]
  - OBSTRUCTIVE AIRWAYS DISORDER [None]
  - CHRONIC OBSTRUCTIVE PULMONARY DISEASE [None]
  - BRONCHOSPASM [None]
